FAERS Safety Report 5605191-2 (Version None)
Quarter: 2008Q1

REPORT INFORMATION
  Report Type: 
  Country: None (occurrence: None)
  Receive Date: 20080128
  Receipt Date: 20080117
  Transmission Date: 20080703
  Serious: Yes (Other)
  Sender: FDA-Public Use
  Company Number: US-PFIZER INC-2008006416

PATIENT
  Sex: Male

DRUGS (2)
  1. CHANTIX [Suspect]
     Indication: SMOKING CESSATION THERAPY
  2. ALL OTHER THERAPEUTIC PRODUCTS [Concomitant]
     Indication: POST-TRAUMATIC STRESS DISORDER

REACTIONS (4)
  - AGITATION [None]
  - ANGER [None]
  - EMOTIONAL DISORDER [None]
  - SUICIDE ATTEMPT [None]
